FAERS Safety Report 4890757-8 (Version None)
Quarter: 2006Q1

REPORT INFORMATION
  Report Type: 
  Country: None (occurrence: None)
  Receive Date: 20060123
  Receipt Date: 20060109
  Transmission Date: 20060701
  Serious: Yes (Hospitalization)
  Sender: FDA-Public Use
  Company Number: MEDI-0004029

PATIENT
  Age: 72 Year
  Sex: Male
  Weight: 71.6683 kg

DRUGS (6)
  1. ETHYOL [Suspect]
     Indication: CHEMOTHERAPY
     Dosage: 500 MG, 5 IN 1 WK, SUBCUTANEOUS
     Route: 058
     Dates: start: 20051123, end: 20051212
  2. ETHYOL [Suspect]
     Indication: RADIOTHERAPY
     Dosage: 500 MG, 5 IN 1 WK, SUBCUTANEOUS
     Route: 058
     Dates: start: 20051123, end: 20051212
  3. RADIATION THERAPY [Concomitant]
  4. TAXOL [Concomitant]
  5. CARBOPLATIN [Concomitant]
  6. VITAMIN HERBAL SUPPLEMENT COCKTAIL [Concomitant]

REACTIONS (6)
  - CHILLS [None]
  - CONFUSIONAL STATE [None]
  - DYSPHAGIA [None]
  - PYREXIA [None]
  - RASH [None]
  - WEIGHT DECREASED [None]
